FAERS Safety Report 6834360-9 (Version None)
Quarter: 2010Q3

REPORT INFORMATION
  Report Type: 
  Country: None (occurrence: None)
  Receive Date: 20100712
  Receipt Date: 20070413
  Transmission Date: 20110219
  Serious: No
  Sender: FDA-Public Use
  Company Number: US-PFIZER INC-2007030890

PATIENT
  Sex: Female
  Weight: 98.2 kg

DRUGS (6)
  1. CHANTIX [Suspect]
     Indication: SMOKING CESSATION THERAPY
     Dates: start: 20070401
  2. SOMA [Concomitant]
  3. LORTAB [Concomitant]
  4. KLONOPIN [Concomitant]
  5. REMERON [Concomitant]
  6. METHADONE HCL [Concomitant]

REACTIONS (1)
  - DYSGEUSIA [None]
